FAERS Safety Report 8931690 (Version 2)
Quarter: 2012Q4

REPORT INFORMATION
  Report Type: 
  Country: US (occurrence: US)
  Receive Date: 20121128
  Receipt Date: 20121203
  Transmission Date: 20130627
  Serious: Yes (Other)
  Sender: FDA-Public Use
  Company Number: US-PFIZER INC-2012297770

PATIENT
  Age: 65 Year
  Sex: Female
  Weight: 68.03 kg

DRUGS (3)
  1. CHANTIX [Suspect]
     Indication: SMOKING CESSATION THERAPY
     Dosage: 0.5 mg, 1x/day
     Route: 048
     Dates: start: 20121015, end: 2012
  2. CHANTIX [Suspect]
     Dosage: 1 mg, 2x/day
     Dates: start: 201211, end: 201211
  3. FISH OIL [Concomitant]
     Indication: CARDIOVASCULAR DISORDER
     Dosage: UNK, daily

REACTIONS (3)
  - Pain [Not Recovered/Not Resolved]
  - Back pain [Not Recovered/Not Resolved]
  - Pain in extremity [Not Recovered/Not Resolved]
